FAERS Safety Report 8057221-9 (Version None)
Quarter: 2012Q1

REPORT INFORMATION
  Report Type: 
  Country: None (occurrence: None)
  Receive Date: 20120119
  Receipt Date: 20120105
  Transmission Date: 20120608
  Serious: Yes (Hospitalization, Other)
  Sender: FDA-Public Use
  Company Number: PHHY2012IT003477

PATIENT
  Age: 31 Year
  Sex: Female

DRUGS (11)
  1. TACROLIMUS [Concomitant]
     Dosage: 0.1 MG/KG, BID
  2. BASILIXIMAB [Suspect]
     Indication: RENAL AND PANCREAS TRANSPLANT
     Dosage: 20 MG, UNK
  3. NEVIRAPINE [Concomitant]
  4. MYCOPHENOLATE MOFETIL [Concomitant]
     Dosage: 1 G, BID
  5. PREDNISONE TAB [Concomitant]
     Dosage: 16 MG, UNK
     Route: 048
  6. RALTEGRAVIR [Concomitant]
  7. RITONAVIR [Concomitant]
  8. CYCLOSPORINE [Suspect]
     Indication: RENAL AND PANCREAS TRANSPLANT
  9. METHYLPREDNISOLONE [Concomitant]
     Dosage: 125 MG, UNK
     Route: 042
  10. ATAZANAVIR [Concomitant]
  11. EMTRICITABINE [Concomitant]

REACTIONS (12)
  - HAEMATOMA [None]
  - HAEMORRHAGE [None]
  - POST PROCEDURAL COMPLICATION [None]
  - PSEUDOMONAL BACTERAEMIA [None]
  - NEPHROPATHY TOXIC [None]
  - TOXICITY TO VARIOUS AGENTS [None]
  - ABSCESS [None]
  - URINARY TRACT INFECTION [None]
  - HERPES SIMPLEX [None]
  - STAPHYLOCOCCAL BACTERAEMIA [None]
  - KLEBSIELLA INFECTION [None]
  - HIV INFECTION [None]
